FAERS Safety Report 23874662 (Version 1)
Quarter: 2024Q2

REPORT INFORMATION
  Report Type: Spontaneous
  Country: US (occurrence: US)
  Receive Date: 20240520
  Receipt Date: 20240520
  Transmission Date: 20240716
  Serious: No
  Sender: FDA-Public Use
  Company Number: US-PFIZER INC-202400111787

PATIENT
  Age: 53 Year
  Sex: Female
  Weight: 60.33 kg

DRUGS (5)
  1. ESTRING [Suspect]
     Active Substance: ESTRADIOL
     Indication: Atrophic vulvovaginitis
     Dosage: 7.5 UG, DAILY
  2. ESTRING [Suspect]
     Active Substance: ESTRADIOL
     Indication: Pain
     Dosage: 7.5 UG, DAILY
  3. ESTRING [Suspect]
     Active Substance: ESTRADIOL
     Indication: Cystitis
  4. ESTRADIOL [Suspect]
     Active Substance: ESTRADIOL
     Indication: Menopause
     Dosage: 0.0375 MG
  5. VALIUM [Suspect]
     Active Substance: DIAZEPAM
     Indication: Pelvic pain
     Dosage: UNK

REACTIONS (1)
  - Breast tenderness [Unknown]
